FAERS Safety Report 6082350-9 (Version None)
Quarter: 2009Q1

REPORT INFORMATION
  Report Type: 
  Country: None (occurrence: None)
  Receive Date: 20090218
  Receipt Date: 20090210
  Transmission Date: 20090719
  Serious: Yes (Other)
  Sender: FDA-Public Use
  Company Number: BR-ROCHE-614057

PATIENT
  Sex: Female
  Weight: 63 kg

DRUGS (6)
  1. RIVOTRIL [Suspect]
     Indication: INSOMNIA
     Route: 048
     Dates: start: 19940101, end: 20090101
  2. BONIVA [Suspect]
     Indication: OSTEOPOROSIS
     Route: 048
     Dates: start: 20090208
  3. CALTRATE [Concomitant]
     Indication: OSTEOPOROSIS
     Route: 048
  4. CRESTOR [Concomitant]
     Route: 048
  5. PONDERA [Concomitant]
     Indication: DEPRESSION
     Route: 048
     Dates: start: 20030101
  6. EVISTA [Concomitant]
     Indication: OSTEOPOROSIS
     Route: 048
     Dates: start: 20090206

REACTIONS (8)
  - ANOREXIA [None]
  - BLOOD CHOLESTEROL INCREASED [None]
  - BREAST SWELLING [None]
  - DIARRHOEA [None]
  - FATIGUE [None]
  - HAEMOPTYSIS [None]
  - OSTEOPOROSIS [None]
  - SOMNOLENCE [None]
